FAERS Safety Report 16366643 (Version 1)
Quarter: 2019Q2

REPORT INFORMATION
  Report Type: Spontaneous
  Country: US (occurrence: US)
  Receive Date: 20190422
  Receipt Date: 20190422
  Transmission Date: 20190711
  Serious: No
  Sender: FDA-Public Use
  Company Number: None

PATIENT
  Age: 62 Year
  Sex: Male

DRUGS (1)
  1. APIXABAN [Suspect]
     Active Substance: APIXABAN
     Indication: ATRIAL FIBRILLATION
     Route: 048
     Dates: start: 20180209, end: 20190212

REACTIONS (6)
  - Vision blurred [None]
  - Haemorrhage [None]
  - Fall [None]
  - Subdural haematoma [None]
  - Headache [None]
  - Head injury [None]

NARRATIVE: CASE EVENT DATE: 20190212
